FAERS Safety Report 9292755 (Version 1)
Quarter: 2013Q2

REPORT INFORMATION
  Report Type: Spontaneous
  Country: JP (occurrence: JP)
  Receive Date: 20130516
  Receipt Date: 20130516
  Transmission Date: 20140414
  Serious: Yes (Other)
  Sender: FDA-Public Use
  Company Number: JP-PFIZER INC-2013148169

PATIENT
  Sex: Male

DRUGS (1)
  1. HALCION [Suspect]
     Dosage: 0.25 MG, AS NEEDED
     Route: 048

REACTIONS (8)
  - Judgement impaired [Unknown]
  - Road traffic accident [Unknown]
  - Altered state of consciousness [Unknown]
  - Hallucination [Unknown]
  - Diplopia [Unknown]
  - Disturbance in attention [Unknown]
  - Dizziness [Unknown]
  - Hyporeflexia [Unknown]
